FAERS Safety Report 9494385 (Version 1)
Quarter: 2013Q3

REPORT INFORMATION
  Report Type: Spontaneous
  Country: DE (occurrence: DE)
  Receive Date: 20130903
  Receipt Date: 20130903
  Transmission Date: 20140515
  Serious: Yes (Other)
  Sender: FDA-Public Use
  Company Number: DE-BAYER-2013-106017

PATIENT
  Age: 75 Year
  Sex: Female

DRUGS (2)
  1. CANESTEN GYN ONCE KOMBI [Suspect]
     Dosage: UNK, ONCE
     Dates: start: 20130824, end: 20130824
  2. METRONIDAZOL [Concomitant]
     Dosage: UNK
     Dates: start: 20130827

REACTIONS (4)
  - Dysuria [Not Recovered/Not Resolved]
  - Urge incontinence [None]
  - Dysuria [None]
  - White blood cells urine positive [Not Recovered/Not Resolved]
